FAERS Safety Report 5489734-8 (Version None)
Quarter: 2007Q4

REPORT INFORMATION
  Report Type: 
  Country: None (occurrence: None)
  Receive Date: 20071018
  Receipt Date: 20071012
  Transmission Date: 20080405
  Serious: Yes (Hospitalization, Other)
  Sender: FDA-Public Use
  Company Number: CA-ASTRAZENECA-2006UW27111

PATIENT
  Age: 17023 Day
  Sex: Female

DRUGS (32)
  1. SYMBICORT [Suspect]
     Indication: BRONCHOPNEUMONIA
     Dosage: 200/6 UG
     Route: 055
     Dates: start: 20061126, end: 20061204
  2. VENTOLIN [Concomitant]
     Indication: BRONCHOPNEUMONIA
     Route: 055
  3. AVELOX [Concomitant]
     Indication: BRONCHOPNEUMONIA
     Route: 048
     Dates: start: 20061129, end: 20061206
  4. CLONAZEPAM [Concomitant]
  5. EFFEXOR [Concomitant]
  6. ALUPENT [Concomitant]
  7. CODEINE [Concomitant]
  8. TETRACYCLINE [Concomitant]
  9. TEGRETOL [Concomitant]
  10. OXYCODEINE [Concomitant]
  11. DARVON [Concomitant]
  12. CLAVULIN [Concomitant]
  13. CECLOR [Concomitant]
  14. FLOXIN [Concomitant]
  15. CIPRO [Concomitant]
  16. BACLOFEN [Concomitant]
  17. ANTIVERT [Concomitant]
  18. AMERGE [Concomitant]
  19. MONOCOR [Concomitant]
  20. ELAVIL [Concomitant]
  21. MORPHINE [Concomitant]
  22. TORADOL [Concomitant]
  23. PENTASA [Concomitant]
  24. DICLOFENAC [Concomitant]
  25. PROGESTERONE [Concomitant]
  26. FLONASE [Concomitant]
  27. CLARITIN [Concomitant]
  28. PREVACID [Concomitant]
  29. LORAZEPAM [Concomitant]
  30. BIAXIN [Concomitant]
  31. HERBAL MEDICATIONS AND VITAMINS [Concomitant]
  32. NYSTATIN [Concomitant]
     Indication: STOMATITIS

REACTIONS (6)
  - ANXIETY [None]
  - ASTHMA [None]
  - BRONCHITIS [None]
  - FUNGAL INFECTION [None]
  - PYREXIA [None]
  - STOMATITIS [None]
